FAERS Safety Report 16012438 (Version 3)
Quarter: 2021Q3

REPORT INFORMATION
  Report Type: Spontaneous
  Country: US (occurrence: US)
  Receive Date: 20190227
  Receipt Date: 20210819
  Transmission Date: 20211014
  Serious: Yes (Disabling, Other)
  Sender: FDA-Public Use
  Company Number: US-TEVA-2019-US-1009085

PATIENT
  Age: 43 Year
  Sex: Female

DRUGS (38)
  1. DOCETAXEL SAGENT [Suspect]
     Active Substance: DOCETAXEL
     Indication: BREAST CANCER FEMALE
     Dosage: EVERY 3 WEEKS 6 CYCLES, ON 23?JUL?2015, 13?AUG?2015, 3?SEP?2015, 24?SEP?2015,15?OCT?2015, 5?NOV?2015
     Route: 042
     Dates: start: 20150723, end: 20151105
  2. PERJETA [Suspect]
     Active Substance: PERTUZUMAB
     Indication: BREAST CANCER FEMALE
     Dosage: EVERY 3 WEEKS 6 CYCLES, ON 23?JUL?2015, 13?AUG?2015, 3?SEP?2015, 24?SEP?2015,15?OCT?2015, 5?NOV?2015
     Route: 042
     Dates: start: 20150723, end: 20151105
  3. KLONOPIN [Concomitant]
     Active Substance: CLONAZEPAM
     Indication: ANXIETY
     Dosage: 1 MILLIGRAM DAILY;
     Route: 048
     Dates: start: 20150120
  4. DECADRON [Concomitant]
     Active Substance: DEXAMETHASONE
     Dosage: EVERY 3 WEEKS, CYCLE 1
     Route: 042
     Dates: start: 20150723, end: 20150723
  5. DECADRON [Concomitant]
     Active Substance: DEXAMETHASONE
     Dosage: EVERY 3 WEEKS, CYCLE 4
     Route: 042
     Dates: start: 20150924, end: 20150924
  6. DECADRON [Concomitant]
     Active Substance: DEXAMETHASONE
     Dosage: EVERY 3 WEEKS, CYCLE 6
     Route: 042
     Dates: start: 20151105, end: 20151105
  7. ATIVAN [Concomitant]
     Active Substance: LORAZEPAM
     Route: 042
     Dates: start: 20151105
  8. ZOFRAN [Concomitant]
     Active Substance: ONDANSETRON HYDROCHLORIDE
     Route: 042
     Dates: start: 20151105
  9. WELLBUTRIN [Concomitant]
     Active Substance: BUPROPION HYDROCHLORIDE
     Indication: DEPRESSION
  10. OMEPRAZOLE. [Concomitant]
     Active Substance: OMEPRAZOLE
     Indication: GASTROOESOPHAGEAL REFLUX DISEASE
     Route: 048
  11. CALCIUM [Concomitant]
     Active Substance: CALCIUM
  12. DOCETAXEL SANOFI [Suspect]
     Active Substance: DOCETAXEL
     Indication: BREAST CANCER FEMALE
     Dosage: EVERY 3 WEEKS 6 CYCLES, ON 23?JUL?2015, 13?AUG?2015, 3?SEP?2015, 24?SEP?2015,15?OCT?2015, 5?NOV?2015
     Route: 042
     Dates: start: 20150723, end: 20151105
  13. DOCETAXEL MCKESSON [Suspect]
     Active Substance: DOCETAXEL
     Indication: BREAST CANCER FEMALE
     Dosage: EVERY 3 WEEKS, CYCLE 1
     Route: 042
     Dates: start: 20150723, end: 20151105
  14. ATROVENT [Concomitant]
     Active Substance: IPRATROPIUM BROMIDE
     Dosage: 2 PUFF EACH NOSTRIL DAILY
     Route: 045
     Dates: start: 20150216
  15. DECADRON [Concomitant]
     Active Substance: DEXAMETHASONE
     Dosage: EVERY 3 WEEKS, CYCLE 5
     Route: 042
     Dates: start: 20151015, end: 20151015
  16. ALEVE [Concomitant]
     Active Substance: NAPROXEN SODIUM
     Dates: start: 20150723
  17. WELLBUTRIN [Concomitant]
     Active Substance: BUPROPION HYDROCHLORIDE
     Indication: ANXIETY
     Dosage: 300 MILLIGRAM DAILY;
     Route: 048
     Dates: start: 20150120
  18. DOCETAXEL SANOFI [Suspect]
     Active Substance: DOCETAXEL
     Route: 042
     Dates: start: 20150723, end: 20151105
  19. DECADRON [Concomitant]
     Active Substance: DEXAMETHASONE
     Dosage: EVERY 3 WEEKS, CYCLE 3
     Route: 042
     Dates: start: 20150903, end: 20150903
  20. ALOXI [Concomitant]
     Active Substance: PALONOSETRON HYDROCHLORIDE
     Dosage: EVERY 3 WEEKS, CYCLE 5
     Route: 042
     Dates: start: 20151015, end: 20151015
  21. ALOXI [Concomitant]
     Active Substance: PALONOSETRON HYDROCHLORIDE
     Dosage: EVERY 3 WEEKS, CYCLE 6
     Route: 042
     Dates: start: 20151105, end: 20151105
  22. DOCETAXEL HOSPIRA [Suspect]
     Active Substance: DOCETAXEL
     Indication: BREAST CANCER FEMALE
     Dosage: EVERY 3 WEEKS 6 CYCLES, ON 23?JUL?2015, 13?AUG?2015, 3?SEP?2015, 24?SEP?2015,15?OCT?2015, 5?NOV?2015
     Route: 042
     Dates: start: 20150723, end: 20151105
  23. CARBOPLATIN. [Suspect]
     Active Substance: CARBOPLATIN
     Indication: BREAST CANCER FEMALE
     Dosage: EVERY 3 WEEKS 6 CYCLES, ON 23?JUL?2015, 13?AUG?2015, 3?SEP?2015, 24?SEP?2015,15?OCT?2015, 5?NOV?2015
     Route: 042
     Dates: start: 20150723, end: 20151105
  24. LIPITOR [Concomitant]
     Active Substance: ATORVASTATIN CALCIUM
     Indication: TYPE V HYPERLIPIDAEMIA
     Dosage: 10 MILLIGRAM DAILY;
     Route: 048
     Dates: start: 20150420
  25. DECADRON [Concomitant]
     Active Substance: DEXAMETHASONE
     Dosage: EVERY 3 WEEKS, CYCLE 2
     Route: 042
     Dates: start: 20150813, end: 20150813
  26. ALOXI [Concomitant]
     Active Substance: PALONOSETRON HYDROCHLORIDE
     Dosage: EVERY 3 WEEKS, CYCLE 2
     Route: 042
     Dates: start: 20150813, end: 20150813
  27. NEULASTA [Concomitant]
     Active Substance: PEGFILGRASTIM
     Dates: start: 20150924
  28. ATIVAN [Concomitant]
     Active Substance: LORAZEPAM
     Route: 042
     Dates: start: 201510
  29. ALOXI [Concomitant]
     Active Substance: PALONOSETRON HYDROCHLORIDE
     Dosage: EVERY 3 WEEKS, CYCLE 1
     Route: 042
     Dates: start: 20150723, end: 20150723
  30. NEULASTA [Concomitant]
     Active Substance: PEGFILGRASTIM
     Dates: start: 20151015
  31. DOCETAXEL NORTHSTAR [Suspect]
     Active Substance: DOCETAXEL
     Indication: BREAST CANCER FEMALE
     Dosage: EVERY 3 WEEKS 6 CYCLES, ON 23?JUL?2015, 13?AUG?2015, 3?SEP?2015, 24?SEP?2015,15?OCT?2015, 5?NOV?2015
     Route: 042
     Dates: start: 20150723, end: 20151105
  32. KLONOPIN [Concomitant]
     Active Substance: CLONAZEPAM
     Indication: DEPRESSION
  33. ALOXI [Concomitant]
     Active Substance: PALONOSETRON HYDROCHLORIDE
     Dosage: EVERY 3 WEEKS, CYCLE 3
     Route: 042
     Dates: start: 20150903, end: 20150903
  34. ALOXI [Concomitant]
     Active Substance: PALONOSETRON HYDROCHLORIDE
     Dosage: EVERY 3 WEEKS, CYCLE 4
     Route: 042
     Dates: start: 20150924, end: 20150924
  35. ZOFRAN [Concomitant]
     Active Substance: ONDANSETRON HYDROCHLORIDE
     Route: 042
     Dates: start: 20151015
  36. DOCETAXEL ACTAVIS [Suspect]
     Active Substance: DOCETAXEL
     Indication: BREAST CANCER FEMALE
     Dosage: EVERY 3 WEEKS 6 CYCLES, ON 23?JUL?2015, 13?AUG?2015, 3?SEP?2015, 24?SEP?2015,15?OCT?2015, 5?NOV?2015
     Route: 042
     Dates: start: 20150723, end: 20151105
  37. HERCEPTIN [Suspect]
     Active Substance: TRASTUZUMAB
     Indication: BREAST CANCER FEMALE
     Dosage: EVERY 3 WEEKS 6 CYCLES,ON 23?JUL?2015,13?AUG?2015,3?SEP?2015,24?SEP?2015,15?OCT?2015,5?NOV?2015
     Route: 042
     Dates: start: 20150723, end: 20151105
  38. DOCETAXEL SANDOZ [Suspect]
     Active Substance: DOCETAXEL
     Indication: BREAST CANCER FEMALE
     Dosage: EVERY 3 WEEKS 6 CYCLES, ON 23?JUL?2015, 13?AUG?2015, 3?SEP?2015, 24?SEP?2015,15?OCT?2015, 5?NOV?2015
     Route: 042
     Dates: start: 20150723, end: 20151105

REACTIONS (19)
  - Hair colour changes [Not Recovered/Not Resolved]
  - Agitation [Unknown]
  - Madarosis [Not Recovered/Not Resolved]
  - Neuropathy peripheral [Recovered/Resolved]
  - Urine odour abnormal [Unknown]
  - Hair texture abnormal [Not Recovered/Not Resolved]
  - Headache [Recovered/Resolved]
  - Alopecia areata [Not Recovered/Not Resolved]
  - Paraesthesia [Recovered/Resolved]
  - Constipation [Recovered/Resolved]
  - Nausea [Recovering/Resolving]
  - Flushing [Recovering/Resolving]
  - Diarrhoea [Unknown]
  - Hypophagia [Unknown]
  - Rash [Unknown]
  - Areflexia [Recovered/Resolved]
  - Decreased appetite [Not Recovered/Not Resolved]
  - Mucosal inflammation [Recovered/Resolved]
  - Fatigue [Not Recovered/Not Resolved]

NARRATIVE: CASE EVENT DATE: 201507
